FAERS Safety Report 9275921 (Version 3)
Quarter: 2013Q2

REPORT INFORMATION
  Report Type: Spontaneous
  Country: US (occurrence: US)
  Receive Date: 20130507
  Receipt Date: 20130529
  Transmission Date: 20140414
  Serious: No
  Sender: FDA-Public Use
  Company Number: US-009507513-1305USA002295

PATIENT
  Age: 68 Year
  Sex: Male

DRUGS (1)
  1. DULERA [Suspect]

REACTIONS (2)
  - Tremor [Recovered/Resolved]
  - Incorrect dose administered [Unknown]
